FAERS Safety Report 9658064 (Version 1)
Quarter: 2013Q4

REPORT INFORMATION
  Report Type: Spontaneous
  Country: SE (occurrence: SE)
  Receive Date: 20131030
  Receipt Date: 20131030
  Transmission Date: 20140711
  Serious: Yes (Other)
  Sender: FDA-Public Use
  Company Number: SE-BRISTOL-MYERS SQUIBB COMPANY-19618768

PATIENT
  Age: 6 Decade
  Sex: Male

DRUGS (5)
  1. FORXIGA [Suspect]
     Dates: start: 2013
  2. BYDUREON [Suspect]
     Dosage: EXENATIDE EXTENDED-RELEASE FOR INJECTABLE SUSPENSION
     Dates: start: 2013
  3. METFORMIN HCL [Suspect]
     Dates: start: 2013
  4. JANUVIA [Suspect]
     Dates: start: 2013
  5. LEVEMIR [Suspect]
     Dates: start: 2013

REACTIONS (3)
  - Arrhythmia [Recovered/Resolved]
  - Fall [Unknown]
  - Electric shock [Unknown]
